FAERS Safety Report 11490985 (Version 1)
Quarter: 2015Q3

REPORT INFORMATION
  Report Type: Report from Study
  Country: US (occurrence: US)
  Receive Date: 20150910
  Receipt Date: 20150910
  Transmission Date: 20151125
  Serious: Yes (Hospitalization)
  Sender: FDA-Public Use
  Company Number: US-AMGEN-USASL2015091490

PATIENT
  Age: 74 Year
  Sex: Female

DRUGS (1)
  1. ENBREL [Suspect]
     Active Substance: ETANERCEPT
     Indication: RHEUMATOID ARTHRITIS
     Dosage: 50 MG, QWK
     Route: 065
     Dates: start: 2005

REACTIONS (7)
  - Bone pain [Recovering/Resolving]
  - Arthralgia [Recovering/Resolving]
  - Foot operation [Unknown]
  - Joint swelling [Recovering/Resolving]
  - Joint dislocation [Recovering/Resolving]
  - Peripheral swelling [Recovering/Resolving]
  - Finger deformity [Recovering/Resolving]

NARRATIVE: CASE EVENT DATE: 2013
